FAERS Safety Report 10479825 (Version 2)
Quarter: 2015Q4

REPORT INFORMATION
  Report Type: Spontaneous
  Country: NL (occurrence: NL)
  Receive Date: 20140928
  Receipt Date: 20151123
  Transmission Date: 20160304
  Serious: Yes (Hospitalization)
  Sender: FDA-Public Use
  Company Number: NL-ABBVIE-14P-114-1287788-00

PATIENT
  Age: 33 Year
  Sex: Male

DRUGS (2)
  1. PANTOPRAZOL [Concomitant]
     Active Substance: PANTOPRAZOLE SODIUM
     Indication: PRODUCT USED FOR UNKNOWN INDICATION
     Route: 048
  2. HUMIRA [Suspect]
     Active Substance: ADALIMUMAB
     Indication: CROHN^S DISEASE
     Route: 058
     Dates: start: 2010

REACTIONS (7)
  - Nephrotic syndrome [Recovered/Resolved]
  - Fat tissue increased [Unknown]
  - Intestinal mucosal hypertrophy [Unknown]
  - Gastrointestinal hypermotility [Unknown]
  - Scar pain [Unknown]
  - Oedema peripheral [Unknown]
  - Intestinal dilatation [Unknown]

NARRATIVE: CASE EVENT DATE: 201408
